FAERS Safety Report 5879977-3 (Version None)
Quarter: 2008Q3

REPORT INFORMATION
  Report Type: 
  Country: None (occurrence: None)
  Receive Date: 20080912
  Receipt Date: 20080903
  Transmission Date: 20090109
  Serious: Yes (Other)
  Sender: FDA-Public Use
  Company Number: AR-ELI_LILLY_AND_COMPANY-AR200808000048

PATIENT
  Sex: Female
  Weight: 100 kg

DRUGS (2)
  1. BYETTA [Suspect]
     Indication: OBESITY
     Dosage: 5 UG, UNKNOWN
     Route: 058
     Dates: start: 20080401, end: 20080501
  2. BYETTA [Suspect]
     Dosage: 10 UG, UNK
     Route: 058
     Dates: start: 20080501, end: 20080501

REACTIONS (7)
  - ABDOMINAL PAIN [None]
  - HEADACHE [None]
  - LIVER DISORDER [None]
  - MALAISE [None]
  - NAUSEA [None]
  - RASH GENERALISED [None]
  - VOMITING [None]
